FAERS Safety Report 5739928-9 (Version None)
Quarter: 2008Q2

REPORT INFORMATION
  Report Type: 
  Country: None (occurrence: None)
  Receive Date: 20080516
  Receipt Date: 20080509
  Transmission Date: 20081010
  Serious: Yes (Other)
  Sender: FDA-Public Use
  Company Number: US-BAYER-200817304NA

PATIENT
  Age: 28 Year
  Sex: Female
  Weight: 100 kg

DRUGS (3)
  1. MIRENA [Suspect]
     Indication: CONTRACEPTION
     Route: 015
     Dates: start: 20080114
  2. VICODIN [Concomitant]
  3. PROVERA [Concomitant]

REACTIONS (2)
  - ENDOMETRITIS [None]
  - VAGINAL HAEMORRHAGE [None]
